FAERS Safety Report 5423435-7 (Version None)
Quarter: 2007Q3

REPORT INFORMATION
  Report Type: 
  Country: None (occurrence: None)
  Receive Date: 20070823
  Receipt Date: 20070727
  Transmission Date: 20080115
  Serious: No
  Sender: FDA-Public Use
  Company Number: US-JNJFOC-20070707004

PATIENT
  Age: 40 Year
  Sex: Male

DRUGS (4)
  1. RISPERDAL [Suspect]
     Indication: DELUSIONAL DISORDER, UNSPECIFIED TYPE
     Route: 048
  2. RISPERDAL [Suspect]
     Indication: SCHIZOPHRENIA
     Route: 048
  3. INVEGA [Suspect]
     Indication: DELUSIONAL DISORDER, UNSPECIFIED TYPE
  4. INVEGA [Suspect]
     Indication: SCHIZOPHRENIA

REACTIONS (6)
  - APHASIA [None]
  - MUSCLE TIGHTNESS [None]
  - MUSCLE TWITCHING [None]
  - SEXUAL DYSFUNCTION [None]
  - SWOLLEN TONGUE [None]
  - THROAT TIGHTNESS [None]
